FAERS Safety Report 25460655 (Version 1)
Quarter: 2025Q2

REPORT INFORMATION
  Report Type: Report from Study
  Country: US (occurrence: US)
  Receive Date: 20250620
  Receipt Date: 20250620
  Transmission Date: 20250717
  Serious: No
  Sender: ACADIA PHARMACEUTICALS
  Company Number: US-ACADIA PHARMACEUTICALS INC.-ACA-2025-PIM-007297

PATIENT
  Age: 76 Year
  Sex: Male

DRUGS (20)
  1. NUPLAZID [Suspect]
     Active Substance: PIMAVANSERIN TARTRATE
     Indication: Psychotic disorder
     Dosage: 34 MILLIGRAM, QD
     Route: 048
     Dates: start: 20250520
  2. NUPLAZID [Suspect]
     Active Substance: PIMAVANSERIN TARTRATE
     Indication: Hallucination
  3. JARDIANCE [Concomitant]
     Active Substance: EMPAGLIFLOZIN
  4. LASIX [Concomitant]
     Active Substance: FUROSEMIDE
  5. AMLODIPINE [Concomitant]
     Active Substance: AMLODIPINE BESYLATE
  6. LEXAPRO [Concomitant]
     Active Substance: ESCITALOPRAM OXALATE
  7. ALLOPURINOL [Concomitant]
     Active Substance: ALLOPURINOL
  8. DONEPEZIL [Concomitant]
     Active Substance: DONEPEZIL
  9. FLOMAX [Concomitant]
     Active Substance: TAMSULOSIN HYDROCHLORIDE
  10. CARBIDOPA AND LEVODOPA [Concomitant]
     Active Substance: CARBIDOPA\LEVODOPA
  11. TIZANIDINE [Concomitant]
     Active Substance: TIZANIDINE
  12. PRIMIDONE [Concomitant]
     Active Substance: PRIMIDONE
  13. TELMISARTAN [Concomitant]
     Active Substance: TELMISARTAN
  14. MEMANTINE [Concomitant]
     Active Substance: MEMANTINE
  15. CENTRUM ADULTS [Concomitant]
  16. MELATONIN [Concomitant]
     Active Substance: MELATONIN
  17. VITAMIN C [Concomitant]
     Active Substance: ASCORBIC ACID
  18. GABAPENTIN [Concomitant]
     Active Substance: GABAPENTIN
  19. OMEPRAZOLE [Concomitant]
     Active Substance: OMEPRAZOLE
  20. Prevision CP [Concomitant]

REACTIONS (1)
  - Chest pain [Unknown]

NARRATIVE: CASE EVENT DATE: 20250614
